FAERS Safety Report 5918026-5 (Version None)
Quarter: 2008Q4

REPORT INFORMATION
  Report Type: 
  Country: None (occurrence: None)
  Receive Date: 20081014
  Receipt Date: 20081009
  Transmission Date: 20090506
  Serious: Yes (Disabling)
  Sender: FDA-Public Use
  Company Number: US-ABBOTT-08P-163-0480768-00

PATIENT
  Sex: Male

DRUGS (2)
  1. DEPAKOTE [Suspect]
     Indication: CONVULSION
     Route: 048
     Dates: start: 19880101
  2. DEPAKOTE [Suspect]
     Route: 048

REACTIONS (2)
  - BLINDNESS [None]
  - HYPERAMMONAEMIA [None]
